FAERS Safety Report 16474325 (Version 3)
Quarter: 2019Q3

REPORT INFORMATION
  Report Type: Spontaneous
  Country: US (occurrence: US)
  Receive Date: 20190625
  Receipt Date: 20190702
  Transmission Date: 20191004
  Serious: Yes (Other)
  Sender: FDA-Public Use
  Company Number: US-PFIZER INC-2019264822

PATIENT
  Age: 55 Year
  Sex: Female
  Weight: 81 kg

DRUGS (1)
  1. CELECOXIB. [Suspect]
     Active Substance: CELECOXIB
     Indication: ARTHRITIS
     Dosage: 200 MG, 1X/DAY (AS NEEDED)

REACTIONS (5)
  - Pruritus generalised [Unknown]
  - Throat tightness [Recovered/Resolved]
  - Cardiac failure congestive [Unknown]
  - Drug hypersensitivity [Not Recovered/Not Resolved]
  - Brain hypoxia [Unknown]

NARRATIVE: CASE EVENT DATE: 201708
